FAERS Safety Report 7111731-7 (Version None)
Quarter: 2010Q4

REPORT INFORMATION
  Report Type: 
  Country: None (occurrence: None)
  Receive Date: 20101118
  Receipt Date: 20101111
  Transmission Date: 20110411
  Serious: Yes (Hospitalization, Other)
  Sender: FDA-Public Use
  Company Number: US-MERCK-1005USA00693

PATIENT
  Age: 62 Year
  Sex: Female
  Weight: 60 kg

DRUGS (3)
  1. FOSAMAX [Suspect]
     Indication: OSTEOPOROSIS
     Route: 048
     Dates: start: 20000413, end: 20081201
  2. FOSAMAX [Suspect]
     Route: 048
     Dates: start: 19950101, end: 20081201
  3. FOSAMAX [Suspect]
     Route: 048

REACTIONS (42)
  - ABDOMINAL PAIN [None]
  - ABDOMINAL RIGIDITY [None]
  - ARTHRALGIA [None]
  - BLISTER [None]
  - BLOOD CHOLESTEROL INCREASED [None]
  - BODY TEMPERATURE INCREASED [None]
  - BUNDLE BRANCH BLOCK LEFT [None]
  - CARDIAC DISORDER [None]
  - CEREBROVASCULAR DISORDER [None]
  - COLONIC POLYP [None]
  - CONDUCTION DISORDER [None]
  - CORONARY ARTERY DISEASE [None]
  - DIVERTICULUM [None]
  - EXOSTOSIS [None]
  - FACIAL BONES FRACTURE [None]
  - FISTULA [None]
  - GINGIVAL ULCERATION [None]
  - GOITRE [None]
  - HAEMORRHOIDS [None]
  - HYPERCHOLESTEROLAEMIA [None]
  - HYPERTENSION [None]
  - HYPERTENSIVE HEART DISEASE [None]
  - IMPAIRED HEALING [None]
  - IRRITABLE BOWEL SYNDROME [None]
  - LUNG DISORDER [None]
  - LUNG NEOPLASM [None]
  - MITRAL VALVE INCOMPETENCE [None]
  - ORAL TORUS [None]
  - OSTEONECROSIS OF JAW [None]
  - OSTEOPENIA [None]
  - PAIN IN JAW [None]
  - PALPITATIONS [None]
  - PNEUMONITIS [None]
  - PRESYNCOPE [None]
  - RIB FRACTURE [None]
  - SINUS BRADYCARDIA [None]
  - SPLENIC GRANULOMA [None]
  - SUPRAVENTRICULAR TACHYCARDIA [None]
  - SYNCOPE [None]
  - TOOTH DISORDER [None]
  - TOOTH EROSION [None]
  - TOOTHACHE [None]
